FAERS Safety Report 15130313 (Version 1)
Quarter: 2018Q3

REPORT INFORMATION
  Report Type: Spontaneous
  Country: FR (occurrence: FR)
  Receive Date: 20180711
  Receipt Date: 20180711
  Transmission Date: 20181010
  Serious: Yes (Life-Threatening, Hospitalization)
  Sender: FDA-Public Use
  Company Number: FR-ELI_LILLY_AND_COMPANY-FR201807002467

PATIENT
  Age: 53 Year
  Sex: Female
  Weight: 60 kg

DRUGS (6)
  1. LAROXYL [Suspect]
     Active Substance: AMITRIPTYLINE HYDROCHLORIDE
     Indication: DEPRESSION
     Dosage: 800 MG, UNKNOWN
     Route: 048
     Dates: start: 20180524, end: 20180524
  2. LAMALINE                           /00764901/ [Suspect]
     Active Substance: ACETAMINOPHEN\BELLADONNA LEAF\CAFFEINE\OPIUM
     Indication: PAIN
     Dosage: 8 G, UNKNOWN
     Route: 048
     Dates: start: 20180524, end: 20180524
  3. DIAZEPAM. [Suspect]
     Active Substance: DIAZEPAM
     Indication: ANXIETY
     Dosage: 100 MG, UNKNOWN
     Route: 048
     Dates: start: 20180524, end: 20180524
  4. LYRICA [Suspect]
     Active Substance: PREGABALIN
     Indication: NEURALGIA
     Dosage: 150 MG, UNKNOWN
     Route: 048
     Dates: start: 20180524, end: 20180524
  5. FLUOXETINE HYDROCHLORIDE. [Suspect]
     Active Substance: FLUOXETINE HYDROCHLORIDE
     Indication: DEPRESSION
     Dosage: 360 MG, UNKNOWN
     Route: 048
     Dates: start: 20180524, end: 20180524
  6. BROMAZEPAM [Suspect]
     Active Substance: BROMAZEPAM
     Indication: ANXIETY
     Dosage: 180 MG, UNKNOWN
     Route: 048
     Dates: start: 20180524, end: 20180524

REACTIONS (5)
  - Hypothermia [Recovered/Resolved]
  - Overdose [Unknown]
  - Sinus bradycardia [Recovered/Resolved]
  - Hypotonia [Recovered/Resolved]
  - Coma [Recovered/Resolved]

NARRATIVE: CASE EVENT DATE: 20180525
